FAERS Safety Report 5323275-3 (Version None)
Quarter: 2007Q2

REPORT INFORMATION
  Report Type: 
  Country: None (occurrence: None)
  Receive Date: 20070220
  Receipt Date: 20061201
  Transmission Date: 20071010
  Serious: No
  Sender: FDA-Public Use
  Company Number: WAES 0612USA00253

PATIENT
  Age: 64 Year
  Sex: Male

DRUGS (9)
  1. JANUVIA [Suspect]
     Indication: DIABETES MELLITUS
     Dosage: 100 MG/DAILY/PO
     Route: 048
     Dates: start: 20061130
  2. GLUCOPHAGE [Concomitant]
  3. NORVASC` [Concomitant]
  4. TOPROL-XL [Concomitant]
  5. VASOTEC [Concomitant]
  6. ZOCOR [Concomitant]
  7. ASPIRIN [Concomitant]
  8. DIGOXIN [Concomitant]
  9. INSULIN [Concomitant]

REACTIONS (1)
  - BLOOD GLUCOSE DECREASED [None]
